FAERS Safety Report 8432988-6 (Version None)
Quarter: 2012Q2

REPORT INFORMATION
  Report Type: 
  Country: None (occurrence: None)
  Receive Date: 20120613
  Receipt Date: 20120608
  Transmission Date: 20120825
  Serious: Yes (Other)
  Sender: FDA-Public Use
  Company Number: US-ROCHE-1076603

PATIENT
  Sex: Female

DRUGS (8)
  1. BONIVA [Suspect]
     Dates: start: 20090822
  2. BONIVA [Suspect]
     Dates: start: 20090925
  3. BONIVA [Suspect]
     Dates: start: 20100224
  4. BONIVA [Suspect]
     Indication: PRODUCT USED FOR UNKNOWN INDICATION
     Dates: start: 20090726
  5. BONIVA [Suspect]
     Dates: start: 20091021
  6. BONIVA [Suspect]
     Dates: start: 20100124
  7. BONIVA [Suspect]
     Dates: start: 20100527
  8. BONIVA [Suspect]
     Dates: start: 20100424

REACTIONS (1)
  - FEMUR FRACTURE [None]
